FAERS Safety Report 7380246-3 (Version None)
Quarter: 2011Q1

REPORT INFORMATION
  Report Type: 
  Country: None (occurrence: None)
  Receive Date: 20110324
  Receipt Date: 20110324
  Transmission Date: 20110831
  Serious: Yes (Hospitalization)
  Sender: FDA-Public Use
  Company Number: None

PATIENT
  Sex: Female
  Weight: 71 kg

DRUGS (2)
  1. TAXOL [Suspect]
     Dosage: 250 MG
     Dates: end: 20110314
  2. CARBOPLATIN [Suspect]
     Dosage: 470 MG
     Dates: end: 20110314

REACTIONS (4)
  - SMALL INTESTINAL OBSTRUCTION [None]
  - NAUSEA [None]
  - VOMITING [None]
  - CONSTIPATION [None]
